FAERS Safety Report 10154664 (Version 1)
Quarter: 2014Q2

REPORT INFORMATION
  Report Type: Spontaneous
  Country: TR (occurrence: TR)
  Receive Date: 20140506
  Receipt Date: 20140506
  Transmission Date: 20141212
  Serious: Yes (Other)
  Sender: FDA-Public Use
  Company Number: TR-ROCHE-1392073

PATIENT
  Sex: Female
  Weight: 67 kg

DRUGS (9)
  1. BONDRONAT [Suspect]
     Indication: PRODUCT USED FOR UNKNOWN INDICATION
     Route: 048
     Dates: start: 20120924, end: 201403
  2. EPIRUBICIN [Concomitant]
     Route: 065
  3. PACLITAXEL [Concomitant]
     Route: 065
  4. CYCLOPHOSPHAMIDE [Concomitant]
     Route: 065
  5. CYCLOPHOSPHAMIDE [Concomitant]
     Route: 065
  6. FLUOROURACIL [Concomitant]
     Route: 065
  7. ZOMETA [Concomitant]
     Route: 065
  8. LETROZOLE [Concomitant]
     Route: 065
     Dates: start: 20120924
  9. CONTRAMAL [Concomitant]
     Route: 065

REACTIONS (2)
  - Osteonecrosis [Not Recovered/Not Resolved]
  - Osteonecrosis of jaw [Not Recovered/Not Resolved]
